FAERS Safety Report 7369525-3 (Version None)
Quarter: 2011Q1

REPORT INFORMATION
  Report Type: 
  Country: None (occurrence: None)
  Receive Date: 20110317
  Receipt Date: 20110317
  Transmission Date: 20110831
  Serious: No
  Sender: FDA-Public Use
  Company Number: None

PATIENT
  Age: 52 Year
  Sex: Male
  Weight: 81.6475 kg

DRUGS (1)
  1. GLIPIZIDE [Suspect]
     Indication: DIABETES MELLITUS
     Dosage: 10MG 2 TIMES A DAY
     Dates: start: 20110225, end: 20110228

REACTIONS (4)
  - FATIGUE [None]
  - INFLUENZA LIKE ILLNESS [None]
  - BLOOD GLUCOSE INCREASED [None]
  - RENAL PAIN [None]
